FAERS Safety Report 8206179-8 (Version None)
Quarter: 2012Q1

REPORT INFORMATION
  Report Type: 
  Country: None (occurrence: None)
  Receive Date: 20120313
  Receipt Date: 20120308
  Transmission Date: 20120608
  Serious: Yes (Hospitalization)
  Sender: FDA-Public Use
  Company Number: AU-ROCHE-1039683

PATIENT
  Age: 44 Year
  Sex: Female
  Weight: 80.4 kg

DRUGS (7)
  1. IBUPROFEN [Concomitant]
     Dates: start: 20111220
  2. LANSOPRAZOLE [Concomitant]
     Dates: start: 20110501
  3. ACETAMINOPHEN [Concomitant]
     Dates: start: 20110901
  4. VEMURAFENIB [Suspect]
     Indication: MALIGNANT MELANOMA
     Dosage: LAST DOSE PRIOR TO SAE 06/FEB/2012
     Route: 048
     Dates: start: 20111216
  5. CITALOPRAM HYDROBROMIDE [Concomitant]
     Dates: start: 20091101
  6. COLOXYL + SENNA [Concomitant]
     Dosage: 2/TABS
     Dates: start: 20120113
  7. PRAMIN [Concomitant]
     Dates: start: 20110110

REACTIONS (1)
  - NAUSEA [None]
